FAERS Safety Report 4827515-6 (Version None)
Quarter: 2005Q4

REPORT INFORMATION
  Report Type: 
  Country: None (occurrence: None)
  Receive Date: 20051114
  Receipt Date: 20020705
  Transmission Date: 20060501
  Serious: Yes (Hospitalization, Other)
  Sender: FDA-Public Use
  Company Number: PHHO2002FR05239

PATIENT
  Age: 75 Year
  Sex: Female
  Weight: 55 kg

DRUGS (1)
  1. TAMOXIFEN CITRATE [Suspect]
     Indication: BREAST CANCER
     Route: 048
     Dates: start: 20000811

REACTIONS (11)
  - AORTIC VALVE REPLACEMENT [None]
  - AORTIC VALVE STENOSIS [None]
  - ARTERIOPATHIC DISEASE [None]
  - ARTERITIS [None]
  - ATRIAL FIBRILLATION [None]
  - CORONARY ARTERY INSUFFICIENCY [None]
  - CORONARY ARTERY SURGERY [None]
  - DIABETES MELLITUS [None]
  - DYSPNOEA [None]
  - SKIN ULCER [None]
  - THROMBOSIS [None]
